FAERS Safety Report 8499965-0 (Version None)
Quarter: 2012Q3

REPORT INFORMATION
  Report Type: 
  Country: None (occurrence: None)
  Receive Date: 20120710
  Receipt Date: 20120627
  Transmission Date: 20120928
  Serious: Yes (Hospitalization, Other)
  Sender: FDA-Public Use
  Company Number: IT-ELI_LILLY_AND_COMPANY-IT201206009138

PATIENT
  Sex: Male

DRUGS (8)
  1. RAMIPRIL HCT [Concomitant]
     Route: 048
  2. BISOPROLOL FUMARATE [Concomitant]
     Dosage: 2.5 MG, UNK
     Route: 048
  3. PRAVASTATIN [Concomitant]
     Dosage: 20 MG, UNK
     Route: 048
  4. ESCITALOPRAM [Concomitant]
     Indication: MAJOR DEPRESSION
     Dosage: 10 MG, QD
     Route: 048
     Dates: start: 20070313, end: 20120105
  5. DIAZEPAM [Concomitant]
     Route: 048
  6. RAMIPRIL [Concomitant]
     Dosage: 5 MG, UNK
     Route: 048
  7. ZYPREXA [Suspect]
     Indication: MAJOR DEPRESSION
     Dosage: 2.5 MG, QD
     Route: 048
     Dates: start: 20070704, end: 20120105
  8. CLOPIDOGREL [Concomitant]
     Dosage: 75 MG, UNK
     Route: 048

REACTIONS (1)
  - ATRIOVENTRICULAR BLOCK SECOND DEGREE [None]
